FAERS Safety Report 4712134-2 (Version None)
Quarter: 2005Q3

REPORT INFORMATION
  Report Type: 
  Country: None (occurrence: None)
  Receive Date: 20050712
  Receipt Date: 20050510
  Transmission Date: 20060218
  Serious: Yes (Other)
  Sender: FDA-Public Use
  Company Number: US-JNJFOC-20050601494

PATIENT
  Sex: Female

DRUGS (8)
  1. MOTRIN [Suspect]
     Indication: PAIN
     Route: 049
  2. NEURONTIN [Interacting]
     Route: 049
  3. NEURONTIN [Interacting]
     Route: 049
  4. NEURONTIN [Interacting]
     Indication: HEADACHE
     Route: 049
  5. HYDROCODONE BITARTRATE [Interacting]
     Indication: DRUG USE FOR UNKNOWN INDICATION
  6. MOBIC [Interacting]
     Indication: PAIN
     Route: 049
  7. ULTRAM [Concomitant]
     Route: 049
  8. ANTI-INFLAMMATORY MEDICATIONS [Concomitant]

REACTIONS (10)
  - BACK PAIN [None]
  - BRAIN DAMAGE [None]
  - DRUG INTERACTION [None]
  - HEADACHE [None]
  - INTERVERTEBRAL DISC PROTRUSION [None]
  - NERVE COMPRESSION [None]
  - NEUROPATHY [None]
  - PAIN [None]
  - PAIN IN EXTREMITY [None]
  - SHOULDER PAIN [None]
